FAERS Safety Report 11754179 (Version 1)
Quarter: 2015Q4

REPORT INFORMATION
  Report Type: Spontaneous
  Country: US (occurrence: None)
  Receive Date: 20151118
  Receipt Date: 20151118
  Transmission Date: 20160304
  Serious: Yes (Hospitalization)
  Sender: FDA-Public Use
  Company Number: None

PATIENT
  Age: 63 Year
  Sex: Male
  Weight: 112.3 kg

DRUGS (2)
  1. OLANZAPINE. [Suspect]
     Active Substance: OLANZAPINE
     Indication: SCHIZOPHRENIA, PARANOID TYPE
     Route: 048
     Dates: start: 20100106, end: 20100119
  2. LAMOTRIGINE. [Suspect]
     Active Substance: LAMOTRIGINE
     Indication: SEIZURE
     Route: 048
     Dates: start: 20080415

REACTIONS (6)
  - Respiratory rate decreased [None]
  - Unresponsive to stimuli [None]
  - Somnolence [None]
  - Sleep apnoea syndrome [None]
  - Sedation [None]
  - Cardio-respiratory arrest [None]

NARRATIVE: CASE EVENT DATE: 20100119
